FAERS Safety Report 13803580 (Version 1)
Quarter: 2017Q3

REPORT INFORMATION
  Report Type: Spontaneous
  Country: US (occurrence: US)
  Receive Date: 20170728
  Receipt Date: 20170728
  Transmission Date: 20171127
  Serious: No
  Sender: FDA-Public Use
  Company Number: US-TEVA-754793ACC

PATIENT
  Sex: Female

DRUGS (3)
  1. HYDROCHLOROTHIAZIDE. [Concomitant]
     Active Substance: HYDROCHLOROTHIAZIDE
     Dosage: 25 MILLIGRAM DAILY;
  2. CARTIA XT [Suspect]
     Active Substance: DILTIAZEM HYDROCHLORIDE
     Indication: ATRIAL FIBRILLATION
     Dates: start: 20161129
  3. PROVOCHOLINE [Concomitant]
     Active Substance: METHACHOLINE CHLORIDE
     Dosage: 20 OR 40 MGS

REACTIONS (7)
  - Sinus disorder [Unknown]
  - Rhinorrhoea [Unknown]
  - Product formulation issue [Unknown]
  - Joint crepitation [Not Recovered/Not Resolved]
  - Secretion discharge [Unknown]
  - Respiratory tract congestion [Unknown]
  - Anxiety [Unknown]

NARRATIVE: CASE EVENT DATE: 201701
